FAERS Safety Report 25117810 (Version 1)
Quarter: 2025Q1

REPORT INFORMATION
  Report Type: Spontaneous
  Country: US (occurrence: US)
  Receive Date: 20250325
  Receipt Date: 20250325
  Transmission Date: 20250408
  Serious: No
  Sender: MYLAN
  Company Number: US-MYLANLABS-2025M1022691

PATIENT
  Age: 42 Year
  Sex: Female
  Weight: 54.43 kg

DRUGS (3)
  1. ESTRADIOL TRANSDERMAL SYSTEM [Suspect]
     Active Substance: ESTRADIOL
     Indication: Menopause
     Dosage: 0.0375 MILLIGRAM, QD (TWICE WEEKLY)
     Dates: start: 202501
  2. PROGESTERONE [Concomitant]
     Active Substance: PROGESTERONE
  3. VITAMIN D3 [Concomitant]
     Active Substance: CHOLECALCIFEROL

REACTIONS (8)
  - Application site rash [Recovered/Resolved]
  - Application site swelling [Not Recovered/Not Resolved]
  - Application site pruritus [Recovering/Resolving]
  - Application site vesicles [Unknown]
  - Application site irritation [Unknown]
  - Hypersensitivity [Recovering/Resolving]
  - Intermenstrual bleeding [Unknown]
  - Drug ineffective [Unknown]

NARRATIVE: CASE EVENT DATE: 20250223
